FAERS Safety Report 8779610 (Version 1)
Quarter: 2012Q4

REPORT INFORMATION
  Report Type: 
  Country: US (occurrence: US)
  Receive Date: 20120912
  Receipt Date: 20120912
  Transmission Date: 20130627
  Serious: No
  Sender: FDA-Public Use
  Company Number: US-TEVA-355918USA

PATIENT
  Sex: Male
  Weight: 72.64 kg

DRUGS (1)
  1. QNASL [Suspect]
     Indication: HYPERSENSITIVITY
     Dates: start: 201206

REACTIONS (3)
  - Sneezing [Recovered/Resolved]
  - Rhinorrhoea [Recovered/Resolved]
  - Nasal discomfort [Recovered/Resolved]
